FAERS Safety Report 9681224 (Version 1)
Quarter: 2013Q4

REPORT INFORMATION
  Report Type: Spontaneous
  Country: US (occurrence: US)
  Receive Date: 20131111
  Receipt Date: 20131111
  Transmission Date: 20140711
  Serious: No
  Sender: FDA-Public Use
  Company Number: US-009507513-1310USA012672

PATIENT
  Age: 8 Year
  Sex: Female

DRUGS (5)
  1. ISENTRESS [Suspect]
     Indication: HIV INFECTION
     Dosage: UNK
     Dates: start: 20131018
  2. ISONIAZID [Concomitant]
  3. INTRON A [Concomitant]
  4. NORVIR [Concomitant]
  5. PREZISTA [Concomitant]

REACTIONS (3)
  - Rash [Unknown]
  - Incorrect route of drug administration [Unknown]
  - Wrong technique in drug usage process [Unknown]
